FAERS Safety Report 22323755 (Version 1)
Quarter: 2023Q2

REPORT INFORMATION
  Report Type: Spontaneous
  Country: ES (occurrence: ES)
  Receive Date: 20230516
  Receipt Date: 20230516
  Transmission Date: 20230722
  Serious: Yes (Other)
  Sender: FDA-Public Use
  Company Number: None

PATIENT
  Age: 35 Year
  Sex: Male

DRUGS (5)
  1. CISPLATIN [Suspect]
     Active Substance: CISPLATIN
     Indication: Germ cell neoplasm
     Dosage: DOSE: 39.4 MG/DAY, DAYS 1-5 OF THE 21-DAY CYCLE. LAST DOSE BEFORE ADR: 31/03/2023
     Dates: start: 20230213
  2. ETOPOSIDE [Suspect]
     Active Substance: ETOPOSIDE
     Indication: Germ cell neoplasm
     Dosage: 197 MG / DAY, DAYS 1-5 OF THE 21-DAY CYCLE, LA
     Dates: start: 20230213
  3. BLEOMYCIN [Suspect]
     Active Substance: BLEOMYCIN SULFATE
     Indication: Germ cell neoplasm
     Dosage: RECEIVED A DOSE ON 04/04/023, THE SAME DAY AS THE ADR
     Dates: start: 20230213
  4. FILGRASTIM [Suspect]
     Active Substance: FILGRASTIM
     Indication: Chemotherapy cytokine prophylaxis
     Dosage: STRENGTH: 6 MG, SOLUTION FOR INJECTION IN PRE-FILLED SYRINGE,  1
     Dates: start: 20230404, end: 20230404
  5. PEGFILGRASTIM [Concomitant]
     Active Substance: PEGFILGRASTIM
     Indication: Prophylaxis
     Dosage: STRENGTH:  6 MG, SOLUTION FOR INJECTION IN PRE-FILLED SYRINGE, 1 PRE-FILLED SYRINGE
     Dates: start: 20230221, end: 20230314

REACTIONS (2)
  - Syncope [Recovered/Resolved]
  - Malaise [Recovered/Resolved]

NARRATIVE: CASE EVENT DATE: 20230404
